FAERS Safety Report 8340581-9 (Version None)
Quarter: 2012Q2

REPORT INFORMATION
  Report Type: 
  Country: None (occurrence: None)
  Receive Date: 20120503
  Receipt Date: 20120503
  Transmission Date: 20120825
  Serious: Yes (Death)
  Sender: FDA-Public Use
  Company Number: None

PATIENT
  Age: 55 Year
  Sex: Female
  Weight: 69.8539 kg

DRUGS (3)
  1. AVASTIN [Suspect]
     Dosage: 800MG EVERY 21 DAYS IVPB (041) OVER 90MIN
     Route: 042
  2. AVASTIN [Suspect]
  3. AVASTIN [Suspect]
     Dosage: 250MG EVERY 21 DAYS  IVBP (041) OVER 90MIN
     Route: 042

REACTIONS (2)
  - CEREBRAL HAEMATOMA [None]
  - PAIN IN EXTREMITY [None]
